FAERS Safety Report 7936376-8 (Version None)
Quarter: 2011Q4

REPORT INFORMATION
  Report Type: 
  Country: None (occurrence: None)
  Receive Date: 20111123
  Receipt Date: 20111114
  Transmission Date: 20120403
  Serious: Yes (Other)
  Sender: FDA-Public Use
  Company Number: GB-JNJFOC-20110908040

PATIENT
  Sex: Female

DRUGS (5)
  1. ACETAMINOPHEN [Concomitant]
     Route: 065
  2. HYDROCORTISONE [Concomitant]
     Route: 065
  3. AMITRIPTYLINE HCL [Concomitant]
     Route: 065
  4. ABIRATERONE ACETATE [Suspect]
     Route: 048
  5. ABIRATERONE ACETATE [Suspect]
     Indication: BREAST CANCER METASTATIC
     Dosage: CYCLE 1 ADMINISTERED ON A CONTINUOUS 28 DAY CYCLE
     Route: 048
     Dates: start: 20110721, end: 20110730

REACTIONS (4)
  - BREAST CANCER METASTATIC [None]
  - ERYTHEMA MULTIFORME [None]
  - RASH [None]
  - NEOPLASM PROGRESSION [None]
